FAERS Safety Report 7490017-5 (Version None)
Quarter: 2011Q2

REPORT INFORMATION
  Report Type: 
  Country: None (occurrence: None)
  Receive Date: 20110517
  Receipt Date: 20110517
  Transmission Date: 20111010
  Serious: Yes (Other)
  Sender: FDA-Public Use
  Company Number: None

PATIENT
  Age: 50 Year
  Sex: Female
  Weight: 58.9676 kg

DRUGS (2)
  1. SINGULAIR [Suspect]
     Indication: PULMONARY CONGESTION
     Dosage: 1 DAILY 1 DAILY PO
     Route: 048
     Dates: start: 20110512, end: 20110514
  2. ALBUTEROL SULFATE AUTOHALER [Concomitant]

REACTIONS (13)
  - MIDDLE INSOMNIA [None]
  - FLANK PAIN [None]
  - BURNING SENSATION [None]
  - FALL [None]
  - CRYING [None]
  - PAIN [None]
  - MOVEMENT DISORDER [None]
  - PAIN IN EXTREMITY [None]
  - ARTHRALGIA [None]
  - HYPERHIDROSIS [None]
  - THIRST [None]
  - FEAR [None]
  - DYSSTASIA [None]
